FAERS Safety Report 7793581-1 (Version None)
Quarter: 2011Q4

REPORT INFORMATION
  Report Type: 
  Country: None (occurrence: None)
  Receive Date: 20111003
  Receipt Date: 20110929
  Transmission Date: 20120403
  Serious: Yes (Other)
  Sender: FDA-Public Use
  Company Number: CN-PFIZER INC-2011231878

PATIENT
  Age: 68 Year
  Sex: Female

DRUGS (9)
  1. FURAZOLIDONE CAP [Suspect]
     Dosage: UNK
     Route: 048
     Dates: start: 20110926
  2. BETALOC [Concomitant]
     Dosage: UNK
  3. LIPITOR [Suspect]
     Dosage: 5 MG, ONCE DAILY FOR 5 DAYS; STOPPED 1 DAY THEN REPEATED
     Route: 048
     Dates: start: 20110601, end: 20110701
  4. LIPITOR [Suspect]
     Dosage: 6.67 MG, 1X/DAY, FOR 6 DAYS FOLLOWING ONE DAY OF STOP; AND THEN REPEATED
     Route: 048
     Dates: start: 20080101, end: 20110601
  5. NORVASC [Concomitant]
     Dosage: UNK
  6. AMOXICILLIN [Suspect]
     Dosage: UNK
     Route: 048
     Dates: start: 20110926
  7. LIPITOR [Suspect]
     Indication: HYPERLIPIDAEMIA
     Dosage: 5 MG, 1X/DAY
     Route: 048
     Dates: start: 20030101, end: 20080101
  8. LIPITOR [Suspect]
     Dosage: 5 MG ONCE DAILY FOR 3 DAYS FOLLOWING 1 DAY STOP THEN REPEATED
     Route: 048
     Dates: start: 20110701, end: 20110928
  9. PANTOPRAZOLE [Suspect]
     Dosage: UNK
     Route: 048
     Dates: start: 20110926

REACTIONS (7)
  - MYALGIA [None]
  - LOW DENSITY LIPOPROTEIN INCREASED [None]
  - DUODENAL ULCER [None]
  - CHROMATURIA [None]
  - GASTRITIS EROSIVE [None]
  - HELICOBACTER TEST POSITIVE [None]
  - MUSCLE TIGHTNESS [None]
